FAERS Safety Report 11799822 (Version 2)
Quarter: 2016Q3

REPORT INFORMATION
  Report Type: Spontaneous
  Country: JP (occurrence: JP)
  Receive Date: 20151203
  Receipt Date: 20160726
  Transmission Date: 20161109
  Serious: Yes (Other)
  Sender: FDA-Public Use
  Company Number: JP-JNJFOC-20151126064

PATIENT
  Age: 9 Decade
  Sex: Female

DRUGS (3)
  1. DUROTEP MT [Suspect]
     Active Substance: FENTANYL
     Indication: PAIN
     Route: 062
     Dates: start: 20151022, end: 2015
  2. DUROTEP MT [Suspect]
     Active Substance: FENTANYL
     Indication: PAIN
     Route: 062
     Dates: start: 2015, end: 20151220
  3. DUROTEP MT [Suspect]
     Active Substance: FENTANYL
     Indication: PAIN
     Route: 062
     Dates: start: 2015, end: 2015

REACTIONS (4)
  - Speech disorder [Recovered/Resolved]
  - Delirium [Recovered/Resolved]
  - Inadequate analgesia [Unknown]
  - Fear [Recovered/Resolved]

NARRATIVE: CASE EVENT DATE: 20151120
